FAERS Safety Report 23027217 (Version 2)
Quarter: 2023Q4

REPORT INFORMATION
  Report Type: Spontaneous
  Country: US (occurrence: US)
  Receive Date: 20231004
  Receipt Date: 20231104
  Transmission Date: 20240110
  Serious: No
  Sender: FDA-Public Use
  Company Number: US-LUPIN PHARMACEUTICALS INC.-2023-08442

PATIENT

DRUGS (1)
  1. ALBUTEROL SULFATE [Suspect]
     Active Substance: ALBUTEROL SULFATE
     Indication: Asthma
     Dosage: UNK, PRN (2 PUFFS AS NEEDED )
     Dates: start: 20230719

REACTIONS (5)
  - Drug dose omission by device [Unknown]
  - Dyspnoea [Unknown]
  - Product expiration date issue [Unknown]
  - Product lot number issue [Unknown]
  - Wrong technique in product usage process [Unknown]
